FAERS Safety Report 5386261-3 (Version None)
Quarter: 2007Q3

REPORT INFORMATION
  Report Type: 
  Country: None (occurrence: None)
  Receive Date: 20070710
  Receipt Date: 20070710
  Transmission Date: 20080115
  Serious: Yes (Death)
  Sender: FDA-Public Use
  Company Number: None

PATIENT
  Sex: Female
  Weight: 77.11 kg

DRUGS (10)
  1. COUMADIN [Suspect]
     Indication: PULMONARY EMBOLISM
     Dosage: 3MG DAILY PO
     Route: 048
     Dates: start: 20061227, end: 20070214
  2. ZYVOX [Concomitant]
  3. PROTONIX [Concomitant]
  4. PRAVACHOL [Concomitant]
  5. TOPROL-XL [Concomitant]
  6. SYNTHROID [Concomitant]
  7. CANASA SUPPOSITORY [Concomitant]
  8. DIGOXIN [Concomitant]
  9. ZOFRAN [Concomitant]
  10. SOLU-MEDROL [Concomitant]

REACTIONS (4)
  - ANAEMIA [None]
  - CARDIAC ARREST [None]
  - HAEMATOMA [None]
  - HYPOTENSION [None]
